FAERS Safety Report 18912350 (Version 2)
Quarter: 2021Q1

REPORT INFORMATION
  Report Type: Spontaneous
  Country: US (occurrence: US)
  Receive Date: 20210219
  Receipt Date: 20210312
  Transmission Date: 20210420
  Serious: No
  Sender: FDA-Public Use
  Company Number: US-GLAXOSMITHKLINE-US2021AMR039993

PATIENT
  Age: 80 Year
  Sex: Female

DRUGS (1)
  1. ZEJULA [Suspect]
     Active Substance: NIRAPARIB
     Indication: OVARIAN CANCER
     Dosage: 100 MG, QD
     Dates: start: 20210204, end: 20210210

REACTIONS (11)
  - Nervousness [Unknown]
  - Bone pain [Unknown]
  - Laboratory test abnormal [Unknown]
  - Anxiety [Unknown]
  - Rhinorrhoea [Unknown]
  - Dyspnoea [Unknown]
  - Product dose omission issue [Unknown]
  - Speech disorder [Unknown]
  - Disorientation [Unknown]
  - Bradykinesia [Unknown]
  - White blood cell count decreased [Not Recovered/Not Resolved]

NARRATIVE: CASE EVENT DATE: 20210207
